FAERS Safety Report 13465781 (Version 1)
Quarter: 2017Q2

REPORT INFORMATION
  Report Type: Spontaneous
  Country: US (occurrence: US)
  Receive Date: 20170421
  Receipt Date: 20170421
  Transmission Date: 20170830
  Serious: No
  Sender: FDA-Public Use
  Company Number: US-BAYER-2017-076427

PATIENT
  Age: 82 Year
  Sex: Female

DRUGS (4)
  1. MIRALAX [Suspect]
     Active Substance: POLYETHYLENE GLYCOL 3350
     Indication: GASTROINTESTINAL DISORDER
     Route: 048
     Dates: start: 20170417
  2. LAXATIVE [Concomitant]
     Active Substance: UNSPECIFIED INGREDIENT
  3. IRON COMPLEX [Concomitant]
  4. CALCIUM BETA [CALCIUM CARBONATE] [Concomitant]

REACTIONS (1)
  - Micturition disorder [Unknown]

NARRATIVE: CASE EVENT DATE: 20170420
